FAERS Safety Report 9543817 (Version 2)
Quarter: 2013Q3

REPORT INFORMATION
  Report Type: Spontaneous
  Country: US (occurrence: US)
  Receive Date: 20130923
  Receipt Date: 20130923
  Transmission Date: 20140515
  Serious: Yes (Death, Other)
  Sender: FDA-Public Use
  Company Number: US-ASTRAZENECA-2013SE52010

PATIENT
  Sex: Male

DRUGS (7)
  1. TOPROL XL [Suspect]
     Indication: HYPERTENSION
     Route: 048
     Dates: start: 2013, end: 20130708
  2. LIPITOR [Concomitant]
     Route: 048
  3. DILITIAZEM [Concomitant]
     Indication: HYPERTENSION
     Route: 048
  4. DIOVAN [Concomitant]
     Indication: HYPERTENSION
     Dosage: DAILY
     Route: 048
  5. GLIPZIDE [Concomitant]
     Indication: DIABETES MELLITUS
     Route: 048
  6. VITAMIN D [Concomitant]
     Indication: SUPPLEMENTATION THERAPY
     Dosage: 2000 UNITS
  7. BILL BERRY [Concomitant]
     Indication: SUPPLEMENTATION THERAPY

REACTIONS (17)
  - Condition aggravated [Fatal]
  - Pulmonary embolism [Recovered/Resolved]
  - Pulmonary oedema [Recovered/Resolved]
  - Bronchospasm [Recovered/Resolved]
  - Depersonalisation [Recovered/Resolved]
  - Cough [Recovered/Resolved]
  - Oxygen saturation decreased [Recovered/Resolved]
  - Joint swelling [Recovered/Resolved]
  - Exercise tolerance decreased [Recovered/Resolved]
  - White blood cell count increased [Recovered/Resolved]
  - Blood creatinine abnormal [Recovering/Resolving]
  - Fatigue [Recovered/Resolved]
  - Dyspnoea [Recovered/Resolved]
  - Wheezing [Recovered/Resolved]
  - Local swelling [Recovered/Resolved]
  - Local swelling [Recovered/Resolved]
  - Intentional drug misuse [Not Recovered/Not Resolved]
